FAERS Safety Report 4950235-4 (Version None)
Quarter: 2006Q1

REPORT INFORMATION
  Report Type: 
  Country: None (occurrence: None)
  Receive Date: 20060322
  Receipt Date: 20060310
  Transmission Date: 20060701
  Serious: Yes (Hospitalization, Other)
  Sender: FDA-Public Use
  Company Number: US-BRISTOL-MYERS SQUIBB COMPANY-13310875

PATIENT
  Age: 70 Year
  Sex: Female

DRUGS (3)
  1. COUMADIN [Suspect]
     Indication: THROMBOSIS
  2. THALOMID [Suspect]
     Indication: MULTIPLE MYELOMA
     Dosage: 50MG/DAILY 26-MAY-2005 TO MAY-2005; 100MG/DAY FROM MAY-2005 TO JUL-2005; 50MGDAY FROM JUL-2005
     Route: 048
     Dates: start: 20050326, end: 20050720
  3. VELCADE [Concomitant]

REACTIONS (7)
  - ATRIAL FIBRILLATION [None]
  - HAEMORRHAGE [None]
  - HYPOTENSION [None]
  - NEUROPATHY [None]
  - PNEUMONIA SALMONELLA [None]
  - RENAL IMPAIRMENT [None]
  - SYNCOPE [None]
